FAERS Safety Report 17043930 (Version 3)
Quarter: 2020Q1

REPORT INFORMATION
  Report Type: Report from Study
  Country: AR (occurrence: AR)
  Receive Date: 20191118
  Receipt Date: 20200127
  Transmission Date: 20200409
  Serious: Yes (Other)
  Sender: FDA-Public Use
  Company Number: AR-BRISTOL-MYERS SQUIBB COMPANY-BMS-2019-109506

PATIENT
  Age: 80 Year
  Sex: Male

DRUGS (1)
  1. APIXABAN [Suspect]
     Active Substance: APIXABAN
     Indication: CEREBROVASCULAR ACCIDENT PROPHYLAXIS
     Dosage: 2.5 MILLIGRAM
     Route: 065
     Dates: start: 20190801, end: 201909

REACTIONS (5)
  - Skin cancer [Unknown]
  - Post procedural haemorrhage [Unknown]
  - Infection [Unknown]
  - Sinus arrhythmia [Unknown]
  - Metastases to lung [Unknown]

NARRATIVE: CASE EVENT DATE: 201908
